FAERS Safety Report 5942343-6 (Version None)
Quarter: 2008Q4

REPORT INFORMATION
  Report Type: 
  Country: None (occurrence: None)
  Receive Date: 20081105
  Receipt Date: 20081024
  Transmission Date: 20090506
  Serious: Yes (Hospitalization)
  Sender: FDA-Public Use
  Company Number: FR-AMGEN-UK315464

PATIENT
  Sex: Male

DRUGS (3)
  1. PANITUMUMAB [Suspect]
     Indication: SQUAMOUS CELL CARCINOMA
     Route: 042
     Dates: start: 20071212
  2. CISPLATIN [Concomitant]
     Route: 065
  3. FLUOROURACIL [Concomitant]
     Route: 065

REACTIONS (1)
  - PNEUMOTHORAX [None]
